FAERS Safety Report 5541600-5 (Version None)
Quarter: 2007Q4

REPORT INFORMATION
  Report Type: 
  Country: None (occurrence: None)
  Receive Date: 20071210
  Receipt Date: 20071204
  Transmission Date: 20080405
  Serious: Yes (Death, Hospitalization)
  Sender: FDA-Public Use
  Company Number: PK-AVENTIS-200720861GDDC

PATIENT
  Age: 60 Year
  Sex: Male
  Weight: 75 kg

DRUGS (2)
  1. AMARYL [Suspect]
     Indication: DIABETES MELLITUS
     Dosage: DOSE: 0.5 TAB
     Route: 048
     Dates: start: 20071105, end: 20071105
  2. CARBAMAZEPINE [Suspect]
     Indication: DIABETIC NEUROPATHY
     Route: 048
     Dates: start: 20071025, end: 20071105

REACTIONS (6)
  - ARRHYTHMIA [None]
  - BLISTER [None]
  - COMA [None]
  - RASH GENERALISED [None]
  - SEPSIS [None]
  - STEVENS-JOHNSON SYNDROME [None]
